FAERS Safety Report 8205257-7 (Version None)
Quarter: 2012Q1

REPORT INFORMATION
  Report Type: 
  Country: None (occurrence: None)
  Receive Date: 20120313
  Receipt Date: 20120228
  Transmission Date: 20120608
  Serious: Yes (Hospitalization)
  Sender: FDA-Public Use
  Company Number: JP-MYLANLABS-2011S1026065

PATIENT
  Age: 70 Year
  Sex: Female

DRUGS (6)
  1. PACLITAXEL [Suspect]
     Indication: MALIGNANT PERITONEAL NEOPLASM
     Route: 041
     Dates: start: 20110307, end: 20110307
  2. GRANISETRON [Concomitant]
     Indication: PREMEDICATION
     Route: 041
     Dates: start: 20110307, end: 20110307
  3. RESTAMIN /00000401/ [Concomitant]
     Indication: PREMEDICATION
     Route: 048
     Dates: start: 20110307, end: 20110307
  4. FAMOTIDINE [Suspect]
     Indication: MALIGNANT PERITONEAL NEOPLASM
     Route: 041
     Dates: start: 20110307, end: 20110307
  5. DEXAMETHASONE SODIUM PHOSPHATE [Suspect]
     Indication: MALIGNANT PERITONEAL NEOPLASM
     Route: 041
     Dates: start: 20110307, end: 20110307
  6. CARBOPLATIN [Suspect]
     Indication: MALIGNANT PERITONEAL NEOPLASM
     Route: 041
     Dates: start: 20110307, end: 20110307

REACTIONS (1)
  - STRESS CARDIOMYOPATHY [None]
